FAERS Safety Report 8562972-3 (Version None)
Quarter: 2012Q3

REPORT INFORMATION
  Report Type: 
  Country: None (occurrence: None)
  Receive Date: 20120802
  Receipt Date: 20120720
  Transmission Date: 20120928
  Serious: No
  Sender: FDA-Public Use
  Company Number: US-AMGEN-USASP2012045430

PATIENT
  Age: 82 Year
  Sex: Female

DRUGS (1)
  1. ENBREL [Suspect]
     Indication: RHEUMATOID ARTHRITIS
     Dosage: 50 MG, QWK
     Dates: start: 20111205, end: 20120702

REACTIONS (6)
  - ASTHENIA [None]
  - DECREASED APPETITE [None]
  - RASH ERYTHEMATOUS [None]
  - PRURITUS [None]
  - SKIN BURNING SENSATION [None]
  - FEELING ABNORMAL [None]
